FAERS Safety Report 9844341 (Version 2)
Quarter: 2014Q1

REPORT INFORMATION
  Report Type: Spontaneous
  Country: US (occurrence: US)
  Receive Date: 20140127
  Receipt Date: 20140127
  Transmission Date: 20141002
  Serious: Yes (Other)
  Sender: FDA-Public Use
  Company Number: US-BEH-2013037384

PATIENT
  Age: 66 Year
  Sex: Female
  Weight: 94 kg

DRUGS (41)
  1. HIZENTRA [Suspect]
     Indication: HYPOGAMMAGLOBULINAEMIA
     Dosage: OVER 1 - 2 HOURS
     Route: 058
  2. HIZENTRA [Suspect]
     Dosage: OVER 1-2 HOURS
     Route: 058
  3. HIZENTRA [Suspect]
     Dosage: 2 GM 10 ML VIAL
     Route: 058
  4. HIZENTRA [Suspect]
     Dosage: 4 GM 20 ML VIAL
     Route: 058
  5. ERYTHROMYCIN [Concomitant]
  6. AMOXICILLIN [Concomitant]
  7. FLONASE [Concomitant]
  8. ASPIRIN [Concomitant]
  9. DIPHENHYDRAMINE [Concomitant]
  10. EPINEPHRINE [Concomitant]
  11. LIDOCAINE/PRILOCAINE [Concomitant]
  12. CLOBETASOL [Concomitant]
  13. ZOFRAN [Concomitant]
  14. HYDROCO/ACETAMIN [Concomitant]
  15. SPIRIVA [Concomitant]
  16. CEFDINIR [Concomitant]
  17. LEVAQUIN [Concomitant]
  18. GAMMAGARD [Concomitant]
  19. HEPARIN [Concomitant]
  20. SODIUM CHLORIDE [Concomitant]
  21. TYLENOL [Concomitant]
  22. NITROSTAT [Concomitant]
  23. CEPHALEXIN [Concomitant]
  24. LESCOL [Concomitant]
  25. PREMARIN [Concomitant]
  26. AMLODIPINE [Concomitant]
  27. COZAAR [Concomitant]
  28. NEXIUM [Concomitant]
  29. DEMEROL [Concomitant]
  30. PHENERGAN [Concomitant]
  31. HYDROCHLOROTHIAZIDE [Concomitant]
  32. LOVAZA [Concomitant]
  33. VITAMIN E [Concomitant]
  34. CYCLOBENZAPRINE [Concomitant]
  35. SINGULAIR [Concomitant]
  36. COREG [Concomitant]
  37. ADVAIR [Concomitant]
  38. MUCINEX [Concomitant]
  39. ATENOLOL [Concomitant]
  40. PRAVASTATIN [Concomitant]
  41. ZANAFLEX [Concomitant]

REACTIONS (6)
  - Pneumonia [Unknown]
  - Bronchitis [Unknown]
  - Hyperhidrosis [Unknown]
  - Dyspnoea [Unknown]
  - Upper respiratory tract infection [Unknown]
  - Infusion site erythema [Unknown]
